FAERS Safety Report 6391690-5 (Version None)
Quarter: 2009Q4

REPORT INFORMATION
  Report Type: 
  Country: None (occurrence: None)
  Receive Date: 20091005
  Receipt Date: 20090924
  Transmission Date: 20100525
  Serious: Yes (Hospitalization, Other)
  Sender: FDA-Public Use
  Company Number: 2009SP027295

PATIENT
  Age: 55 Year
  Sex: Male
  Weight: 80 kg

DRUGS (4)
  1. TEMODAL [Suspect]
     Dosage: 75 MG/M2 ; 150 MG/M2
     Dates: start: 20061228, end: 20070209
  2. TEMODAL [Suspect]
     Dosage: 75 MG/M2 ; 150 MG/M2
     Dates: start: 20070503, end: 20070521
  3. RAMIPRIL [Concomitant]
  4. AMLODIPINE [Concomitant]

REACTIONS (7)
  - APHASIA [None]
  - BRAIN OEDEMA [None]
  - DYSKINESIA [None]
  - GLIOBLASTOMA [None]
  - GRAND MAL CONVULSION [None]
  - NEOPLASM PROGRESSION [None]
  - OEDEMA PERIPHERAL [None]
